FAERS Safety Report 9963749 (Version 1)
Quarter: 2014Q1

REPORT INFORMATION
  Report Type: Report from Study
  Country: US (occurrence: US)
  Receive Date: 20140305
  Receipt Date: 20140305
  Transmission Date: 20141002
  Serious: No
  Sender: FDA-Public Use
  Company Number: US-ABBVIE-13P-163-1119046-00

PATIENT
  Age: 60 Year
  Sex: Female

DRUGS (1)
  1. HUMIRA [Suspect]
     Indication: CROHN^S DISEASE
     Dates: start: 201304

REACTIONS (6)
  - Paranasal sinus hypersecretion [Recovering/Resolving]
  - Cough [Recovering/Resolving]
  - Weight increased [Recovering/Resolving]
  - Anxiety [Recovering/Resolving]
  - Rash [Recovering/Resolving]
  - Pain [Recovering/Resolving]
